FAERS Safety Report 7655058-3 (Version None)
Quarter: 2011Q3

REPORT INFORMATION
  Report Type: 
  Country: None (occurrence: None)
  Receive Date: 20110728
  Receipt Date: 20110718
  Transmission Date: 20111222
  Serious: Yes (Other)
  Sender: FDA-Public Use
  Company Number: 2011AT000271

PATIENT
  Age: 68 Year
  Sex: Male

DRUGS (3)
  1. EDEX [Suspect]
     Indication: ERECTILE DYSFUNCTION
     Dosage: 10 UG;ICAN; 20 UG;ICAN
  2. SOTALOL HCL [Concomitant]
  3. KARDEGIC /00002703/) [Concomitant]

REACTIONS (2)
  - DRUG EFFECT DECREASED [None]
  - ATRIAL FIBRILLATION [None]
